FAERS Safety Report 9081394 (Version 1)
Quarter: 2013Q1

REPORT INFORMATION
  Report Type: Report from Study
  Country: US (occurrence: US)
  Receive Date: 20130130
  Receipt Date: 20130130
  Transmission Date: 20140127
  Serious: Yes (Hospitalization, Other)
  Sender: FDA-Public Use
  Company Number: US-NAPPMUNDI-USA-2013-0097663

PATIENT
  Sex: Male

DRUGS (17)
  1. OXYCODONE HCL [Suspect]
     Indication: PAIN
     Dosage: 5-10MG PRN
     Route: 048
  2. DASATINIB [Suspect]
     Indication: PROSTATE CANCER
     Dosage: 70 MG, DAILY
     Dates: start: 20120105
  3. ABIRATERONE ACETATE [Suspect]
     Indication: PROSTATE CANCER
     Dosage: 1000 MG, DAILY
     Dates: start: 20110915
  4. BISOPROLOL FUMARATE [Suspect]
     Indication: PRODUCT USED FOR UNKNOWN INDICATION
     Dosage: 10/6.25MG
     Route: 048
  5. DEGARELIX ACETATE [Suspect]
     Indication: PRODUCT USED FOR UNKNOWN INDICATION
     Dosage: 80 MG, MONTHLY
     Route: 058
  6. MULTIVITAMIN                       /00097801/ [Suspect]
     Indication: PRODUCT USED FOR UNKNOWN INDICATION
     Dosage: 1 TABLET, DAILY
  7. ZOMETA [Suspect]
     Indication: PRODUCT USED FOR UNKNOWN INDICATION
     Dosage: 4 MG, Q3 MONTHS
     Route: 042
  8. ALPRAZOLAM [Suspect]
     Indication: SLEEP DISORDER
     Dosage: 0.25 MG, UNK
     Route: 048
  9. KLOR-CON [Suspect]
     Indication: PRODUCT USED FOR UNKNOWN INDICATION
     Dosage: 20 MEQ, DAILY
  10. TESSALON PERLE [Suspect]
     Indication: PRODUCT USED FOR UNKNOWN INDICATION
     Dosage: 1-2 CAPSULES
     Route: 048
  11. CLARITIN [Suspect]
     Indication: PRODUCT USED FOR UNKNOWN INDICATION
     Dosage: 10 MG, DAILY
     Route: 048
  12. ASPIRIN [Suspect]
     Indication: PRODUCT USED FOR UNKNOWN INDICATION
     Dosage: 81 MG, DAILY
     Route: 048
  13. CARAFATE [Concomitant]
     Indication: PRODUCT USED FOR UNKNOWN INDICATION
  14. FIRMAGON                           /01764802/ [Concomitant]
     Indication: PRODUCT USED FOR UNKNOWN INDICATION
     Dosage: UNK
     Dates: start: 20120920
  15. METOPROLOL [Concomitant]
     Indication: PRODUCT USED FOR UNKNOWN INDICATION
  16. PREDNISONE [Concomitant]
     Indication: PRODUCT USED FOR UNKNOWN INDICATION
  17. REGLAN                             /00041901/ [Suspect]
     Indication: PRODUCT USED FOR UNKNOWN INDICATION

REACTIONS (7)
  - Renal failure acute [Not Recovered/Not Resolved]
  - Renal tubular necrosis [Unknown]
  - Acute prerenal failure [Unknown]
  - Pain [Unknown]
  - Hypokalaemia [Recovered/Resolved]
  - Gout [Unknown]
  - Swelling [Unknown]
